FAERS Safety Report 22599839 (Version 1)
Quarter: 2023Q2

REPORT INFORMATION
  Report Type: Spontaneous
  Country: US (occurrence: US)
  Receive Date: 20230614
  Receipt Date: 20230614
  Transmission Date: 20230721
  Serious: No
  Sender: FDA-Public Use
  Company Number: US-AMNEAL PHARMACEUTICALS-2023-AMRX-01220

PATIENT
  Sex: Female
  Weight: 65.76 kg

DRUGS (2)
  1. LIDOCAINE [Suspect]
     Active Substance: LIDOCAINE
     Indication: Musculoskeletal pain
     Dosage: STILL TAKING FOR 3 HOURS, 5%
     Route: 062
  2. TYLENOL [Concomitant]
     Active Substance: ACETAMINOPHEN
     Indication: Product used for unknown indication
     Dosage: 2 TABLETS(500MG), 1 /WEEK
     Route: 065

REACTIONS (1)
  - Therapeutic response shortened [Unknown]
